FAERS Safety Report 18992308 (Version 2)
Quarter: 2022Q2

REPORT INFORMATION
  Report Type: Spontaneous
  Country: CA (occurrence: CA)
  Receive Date: 20210310
  Receipt Date: 20220524
  Transmission Date: 20220721
  Serious: Yes (Other)
  Sender: FDA-Public Use
  Company Number: CA-AMERICAN REGENT INC-2021000591

PATIENT
  Age: 47 Year
  Sex: Female

DRUGS (2)
  1. VENOFER [Suspect]
     Active Substance: IRON SUCROSE
     Indication: Anaemia
     Dosage: 300 MILLIGRAM, ONCE
     Route: 042
     Dates: start: 20200729, end: 20200729
  2. SODIUM CHLORIDE [Concomitant]
     Active Substance: SODIUM CHLORIDE
     Indication: Catheter management
     Dosage: UNK, SINGLE
     Route: 042
     Dates: start: 20200729, end: 20200729

REACTIONS (9)
  - Defaecation urgency [Recovered/Resolved]
  - Micturition urgency [Recovered/Resolved]
  - Pain [Recovered/Resolved]
  - Therapy change [Recovered/Resolved]
  - Muscle tightness [Recovered/Resolved]
  - Burning sensation [Recovered/Resolved]
  - Paraesthesia [Recovered/Resolved]
  - Peripheral swelling [Recovered/Resolved]
  - Nausea [Recovered/Resolved]

NARRATIVE: CASE EVENT DATE: 20200729
